FAERS Safety Report 13229316 (Version 3)
Quarter: 2017Q2

REPORT INFORMATION
  Report Type: Spontaneous
  Country: JP (occurrence: JP)
  Receive Date: 20170214
  Receipt Date: 20170515
  Transmission Date: 20170830
  Serious: Yes (Hospitalization)
  Sender: FDA-Public Use
  Company Number: JP-ROCHE-1893445

PATIENT
  Age: 65 Year
  Sex: Female
  Weight: 58 kg

DRUGS (5)
  1. ACTEMRA [Suspect]
     Active Substance: TOCILIZUMAB
     Indication: RHEUMATOID ARTHRITIS
     Route: 041
     Dates: start: 20120803, end: 20130517
  2. RHEUMATREX [Concomitant]
     Active Substance: METHOTREXATE SODIUM
     Route: 048
     Dates: start: 20120120, end: 20170120
  3. ACTEMRA [Suspect]
     Active Substance: TOCILIZUMAB
     Indication: RHEUMATOID ARTHRITIS
  4. ACTEMRA [Suspect]
     Active Substance: TOCILIZUMAB
     Indication: RHEUMATOID ARTHRITIS
  5. ACTEMRA [Suspect]
     Active Substance: TOCILIZUMAB
     Indication: RHEUMATOID ARTHRITIS
     Dosage: DTE OF THE MOST RECENT DOSE OF TOCILIZUMAB PRIOR TO EVENT: 20/JAN/2017
     Route: 058
     Dates: start: 20130614

REACTIONS (1)
  - Chronic myelomonocytic leukaemia [Recovered/Resolved]

NARRATIVE: CASE EVENT DATE: 20170204
